FAERS Safety Report 23104921 (Version 2)
Quarter: 2023Q4

REPORT INFORMATION
  Report Type: Spontaneous
  Country: US (occurrence: US)
  Receive Date: 20231025
  Receipt Date: 20231031
  Transmission Date: 20240109
  Serious: No
  Sender: FDA-Public Use
  Company Number: US-SA-SAC20231018000750

PATIENT
  Age: 59 Year
  Sex: Female
  Weight: 63.5 kg

DRUGS (1)
  1. DUPIXENT [Suspect]
     Active Substance: DUPILUMAB
     Indication: Neurodermatitis
     Dosage: 300 MG, QOW
     Route: 058

REACTIONS (10)
  - Withdrawal syndrome [Unknown]
  - Blister [Unknown]
  - Sleep deficit [Unknown]
  - Skin ulcer [Unknown]
  - Erythema [Unknown]
  - Skin burning sensation [Unknown]
  - Rash [Unknown]
  - Product dose omission issue [Unknown]
  - Neurodermatitis [Unknown]
  - Product dose omission issue [Unknown]
